FAERS Safety Report 8355011-0 (Version None)
Quarter: 2012Q2

REPORT INFORMATION
  Report Type: 
  Country: None (occurrence: None)
  Receive Date: 20120511
  Receipt Date: 20120501
  Transmission Date: 20120825
  Serious: Yes (Other)
  Sender: FDA-Public Use
  Company Number: NL-TEVA-337003ISR

PATIENT
  Age: 61 Year
  Sex: Male

DRUGS (3)
  1. ACTIQ [Suspect]
     Dosage: 6800 MICROGRAM; 15 LOZENGE
     Route: 002
     Dates: start: 20110201
  2. METHADONE HCL [Concomitant]
  3. ACTIQ [Suspect]
     Dosage: 17 LOZENGE
     Route: 002
     Dates: start: 20110201

REACTIONS (3)
  - OVERDOSE [None]
  - DRUG DEPENDENCE [None]
  - OFF LABEL USE [None]
